FAERS Safety Report 5160555-9 (Version None)
Quarter: 2006Q4

REPORT INFORMATION
  Report Type: 
  Country: None (occurrence: None)
  Receive Date: 20061121
  Receipt Date: 20061106
  Transmission Date: 20070319
  Serious: Yes (Death, Hospitalization)
  Sender: FDA-Public Use
  Company Number: 2005095942

PATIENT
  Age: 58 Year
  Sex: Female
  Weight: 48.0813 kg

DRUGS (11)
  1. SU-011,248 (SUNITINIB MALATE) [Suspect]
     Indication: GASTROINTESTINAL STROMAL TUMOUR
     Dosage: 50 MG (50 MG, 1 IN 1 D), ORAL
     Route: 048
     Dates: start: 20040716, end: 20050702
  2. SYNTHROID [Concomitant]
  3. PREVACID [Concomitant]
  4. MONTELUKAST (MONTELUKAST) [Concomitant]
  5. ZYRTEC [Concomitant]
  6. ALBUTEROL [Concomitant]
  7. MOTRIN [Concomitant]
  8. TYLENOL PAM (DIPHENHYDRAMINE, PARACETAMOL) [Concomitant]
  9. ZANTAC [Concomitant]
  10. EUCERIN (WOOL FAT) [Concomitant]
  11. MEGACE [Concomitant]

REACTIONS (17)
  - BLOOD CREATININE INCREASED [None]
  - BLOOD PH DECREASED [None]
  - BLOOD UREA INCREASED [None]
  - DEHYDRATION [None]
  - DISSEMINATED INTRAVASCULAR COAGULATION [None]
  - HAEMOGLOBIN DECREASED [None]
  - HEPATIC FAILURE [None]
  - HEPATIC ISCHAEMIA [None]
  - HEPATIC NECROSIS [None]
  - HEPATOTOXICITY [None]
  - LUNG DISORDER [None]
  - LYMPHADENOPATHY [None]
  - METASTASES TO LIVER [None]
  - PLATELET COUNT DECREASED [None]
  - PLEURAL EFFUSION [None]
  - TREATMENT NONCOMPLIANCE [None]
  - WHITE BLOOD CELL COUNT DECREASED [None]
